FAERS Safety Report 16581860 (Version 3)
Quarter: 2019Q4

REPORT INFORMATION
  Report Type: Report from Study
  Country: LB (occurrence: LB)
  Receive Date: 20190716
  Receipt Date: 20191001
  Transmission Date: 20200122
  Serious: No
  Sender: FDA-Public Use
  Company Number: LB-BIOGEN-2019BI00763374

PATIENT
  Age: 32 Year
  Sex: Female

DRUGS (1)
  1. TECFIDERA [Suspect]
     Active Substance: DIMETHYL FUMARATE
     Indication: RELAPSING-REMITTING MULTIPLE SCLEROSIS
     Route: 048
     Dates: start: 20190531

REACTIONS (4)
  - Breast hyperplasia [Unknown]
  - Fibrocystic breast disease [Unknown]
  - Mammary duct ectasia [Unknown]
  - Mastitis [Unknown]

NARRATIVE: CASE EVENT DATE: 20190726
